FAERS Safety Report 6068594-0 (Version None)
Quarter: 2009Q1

REPORT INFORMATION
  Report Type: 
  Country: None (occurrence: None)
  Receive Date: 20090206
  Receipt Date: 20070627
  Transmission Date: 20090719
  Serious: Yes (Hospitalization)
  Sender: FDA-Public Use
  Company Number: DE-PFIZER INC-2009164225

PATIENT

DRUGS (2)
  1. GENOTROPIN [Suspect]
     Indication: CROHN'S DISEASE
     Dosage: 3.2 IU, 1X/DAY
     Route: 058
     Dates: start: 20021008, end: 20031017
  2. AZATHIOPRINE [Concomitant]
     Indication: CROHN'S DISEASE
     Dosage: DAILY
     Route: 048
     Dates: start: 20010322, end: 20031017

REACTIONS (1)
  - ILEAL PERFORATION [None]
